FAERS Safety Report 7533363-9 (Version None)
Quarter: 2011Q2

REPORT INFORMATION
  Report Type: 
  Country: None (occurrence: None)
  Receive Date: 20110608
  Receipt Date: 20050916
  Transmission Date: 20111010
  Serious: Yes (Death, Hospitalization)
  Sender: FDA-Public Use
  Company Number: PHFR2005GB00819

PATIENT
  Sex: Female
  Weight: 94.7 kg

DRUGS (9)
  1. OLANZAPINE [Concomitant]
     Route: 065
  2. FOLIC ACID [Suspect]
     Route: 065
  3. CLOZAPINE [Suspect]
     Indication: SCHIZOPHRENIA
     Route: 048
     Dates: start: 20041008
  4. HALOPERIDOL [Suspect]
     Route: 065
  5. CITALOPRAM HYDROBROMIDE [Concomitant]
     Route: 065
  6. ZOPICLONE [Concomitant]
     Route: 065
  7. ALCOHOL [Suspect]
     Route: 048
  8. DIAZEPAM [Suspect]
     Route: 065
  9. ALLOPURINOL [Concomitant]
     Route: 065

REACTIONS (3)
  - DRUG LEVEL INCREASED [None]
  - MALAISE [None]
  - CARDIOPULMONARY FAILURE [None]
